FAERS Safety Report 4738188-5 (Version None)
Quarter: 2005Q3

REPORT INFORMATION
  Report Type: 
  Country: None (occurrence: None)
  Receive Date: 20050809
  Receipt Date: 20050727
  Transmission Date: 20060218
  Serious: Yes (Hospitalization)
  Sender: FDA-Public Use
  Company Number: 2005AP04102

PATIENT
  Sex: Male

DRUGS (3)
  1. XYLOCAINE [Suspect]
     Indication: LOCAL ANAESTHESIA
     Dosage: 5 SPRAYS
     Route: 061
     Dates: start: 20050723, end: 20050723
  2. XYLOCAINE [Suspect]
     Route: 048
     Dates: start: 20050723, end: 20050723
  3. BUSCOPAN [Suspect]
     Dates: start: 20050723, end: 20050723

REACTIONS (1)
  - SHOCK [None]
